FAERS Safety Report 23565794 (Version 1)
Quarter: 2024Q1

REPORT INFORMATION
  Report Type: Spontaneous
  Country: US (occurrence: None)
  Receive Date: 20240224
  Receipt Date: 20240224
  Transmission Date: 20240410
  Serious: Yes (Hospitalization)
  Sender: FDA-Public Use
  Company Number: None

PATIENT
  Age: 49 Year
  Sex: Male
  Weight: 90 kg

DRUGS (1)
  1. NALTREXONE [Suspect]
     Active Substance: NALTREXONE
     Indication: Dependence
     Dosage: OTHER FREQUENCY : ONCE;?
     Route: 048
     Dates: start: 20240223, end: 20240223

REACTIONS (3)
  - Hallucination [None]
  - Aggression [None]
  - Aggression [None]

NARRATIVE: CASE EVENT DATE: 20240223
